FAERS Safety Report 9649597 (Version 3)
Quarter: 2014Q1

REPORT INFORMATION
  Report Type: Report from Study
  Country: UA (occurrence: UA)
  Receive Date: 20131028
  Receipt Date: 20140205
  Transmission Date: 20141002
  Serious: Yes (Death, Other)
  Sender: FDA-Public Use
  Company Number: UA-TAKEDA-TPA2013A02493

PATIENT
  Sex: 0

DRUGS (4)
  1. FEBUXOSTAT [Suspect]
     Indication: TUMOUR LYSIS SYNDROME
     Dosage: 120 MG, QD
     Route: 048
     Dates: start: 20130306, end: 20130312
  2. CARSIL [Concomitant]
     Dosage: 80MG, TID
     Route: 048
     Dates: start: 20130225, end: 20130311
  3. FLUDARABINE [Concomitant]
     Dosage: UNK
     Dates: start: 20130308, end: 20130310
  4. CYCLOPHOSPHAMIDE [Concomitant]
     Dates: start: 20130308, end: 20130310

REACTIONS (3)
  - Pneumonia [Fatal]
  - Renal failure [Fatal]
  - Atrial fibrillation [Fatal]
